FAERS Safety Report 23394888 (Version 1)
Quarter: 2024Q1

REPORT INFORMATION
  Report Type: Spontaneous
  Country: US (occurrence: US)
  Receive Date: 20240112
  Receipt Date: 20240112
  Transmission Date: 20240409
  Serious: Yes (Other)
  Sender: FDA-Public Use
  Company Number: US-HALEON-USCH2023052445

PATIENT
  Sex: Female

DRUGS (1)
  1. SENSODYNE COMPLETE PROTECTION [Suspect]
     Active Substance: STANNOUS FLUORIDE
     Indication: Hyperaesthesia teeth
     Dosage: UNK
     Dates: start: 2023

REACTIONS (4)
  - Abortion spontaneous [Unknown]
  - Oral pain [Recovering/Resolving]
  - Toothache [Recovering/Resolving]
  - Exposure during pregnancy [Unknown]

NARRATIVE: CASE EVENT DATE: 20230101
